FAERS Safety Report 17823714 (Version 1)
Quarter: 2020Q2

REPORT INFORMATION
  Report Type: Spontaneous
  Country: US (occurrence: US)
  Receive Date: 20200526
  Receipt Date: 20200526
  Transmission Date: 20200714
  Serious: No
  Sender: FDA-Public Use
  Company Number: US-PFIZER INC-2020204795

PATIENT
  Age: 4 Year
  Sex: Female

DRUGS (2)
  1. LORBRENA [Suspect]
     Active Substance: LORLATINIB
     Indication: ADRENAL GLAND CANCER
     Dosage: 50 MG (2 TABLETS OF 25 MG), 1X/DAY
     Route: 048
  2. LORBRENA [Suspect]
     Active Substance: LORLATINIB
     Dosage: 25 MG (1 TABLET), 1X/DAY
     Route: 048

REACTIONS (4)
  - Thyroid disorder [Unknown]
  - Blood cholesterol increased [Recovering/Resolving]
  - Off label use [Unknown]
  - Product use in unapproved indication [Unknown]
